FAERS Safety Report 16789291 (Version 1)
Quarter: 2019Q3

REPORT INFORMATION
  Report Type: Spontaneous
  Country: US (occurrence: US)
  Receive Date: 20190910
  Receipt Date: 20190910
  Transmission Date: 20191005
  Serious: No
  Sender: FDA-Public Use
  Company Number: US-BRISTOL-MYERS SQUIBB COMPANY-BMS-2019-086617

PATIENT
  Age: 72 Year
  Sex: Male
  Weight: 64 kg

DRUGS (1)
  1. ELIQUIS [Suspect]
     Active Substance: APIXABAN
     Indication: PRODUCT USED FOR UNKNOWN INDICATION
     Dosage: 2.5 MILLIGRAM ONCE DAILY
     Route: 048
     Dates: start: 201908, end: 201908

REACTIONS (5)
  - Crying [Unknown]
  - Drug ineffective [Unknown]
  - Emotional disorder [Unknown]
  - Peripheral swelling [Recovered/Resolved]
  - Ear disorder [Unknown]

NARRATIVE: CASE EVENT DATE: 201908
